APPROVED DRUG PRODUCT: NIZATIDINE
Active Ingredient: NIZATIDINE
Strength: 300MG
Dosage Form/Route: CAPSULE;ORAL
Application: A075616 | Product #002 | TE Code: AB
Applicant: WATSON LABORATORIES INC
Approved: Jul 9, 2002 | RLD: No | RS: Yes | Type: RX